FAERS Safety Report 7720487-6 (Version None)
Quarter: 2011Q3

REPORT INFORMATION
  Report Type: 
  Country: None (occurrence: None)
  Receive Date: 20110831
  Receipt Date: 20110615
  Transmission Date: 20111222
  Serious: No
  Sender: FDA-Public Use
  Company Number: US-KINGPHARMUSA00001-K201100718

PATIENT
  Sex: Female

DRUGS (1)
  1. PENICILLIN G PROCAINE [Suspect]
     Dosage: UNK
     Route: 030
     Dates: start: 20110615, end: 20110615

REACTIONS (2)
  - EXPIRED DRUG ADMINISTERED [None]
  - NO ADVERSE EVENT [None]
